FAERS Safety Report 8050561-9 (Version None)
Quarter: 2012Q1

REPORT INFORMATION
  Report Type: 
  Country: None (occurrence: None)
  Receive Date: 20120117
  Receipt Date: 20120110
  Transmission Date: 20120608
  Serious: Yes (Hospitalization)
  Sender: FDA-Public Use
  Company Number: FR-PFIZER INC-2012006552

PATIENT
  Age: 3 Year
  Sex: Female
  Weight: 14.5 kg

DRUGS (8)
  1. CYTARABINE [Suspect]
     Dosage: 18.9 MG, CYCLIC
     Route: 042
     Dates: start: 20111213, end: 20111214
  2. ONDANSETRON [Suspect]
     Dosage: 4 MG, CYCLIC
     Route: 042
     Dates: start: 20111206, end: 20111206
  3. CYTARABINE [Suspect]
     Dosage: 18.9 MG, CYCLIC
     Route: 042
     Dates: start: 20111220, end: 20111221
  4. CYCLOPHOSPHAMIDE [Suspect]
     Dosage: 630 MG, CYCLIC
     Route: 042
     Dates: start: 20111206, end: 20111206
  5. ONDANSETRON [Suspect]
     Dosage: 4 MG, CYCLIC
     Route: 042
     Dates: start: 20111220, end: 20111220
  6. CYTARABINE [Suspect]
     Dosage: 18.9 MG, CYCLIC
     Route: 042
     Dates: start: 20111206, end: 20111207
  7. THIOGUANINE [Suspect]
     Dosage: 40 MG, 1X/DAY
     Route: 048
     Dates: start: 20111206, end: 20111226
  8. CYCLOPHOSPHAMIDE [Suspect]
     Dosage: 630 MG, CYCLIC
     Route: 042
     Dates: start: 20111220, end: 20111220

REACTIONS (1)
  - VENOOCCLUSIVE LIVER DISEASE [None]
